FAERS Safety Report 16486419 (Version 3)
Quarter: 2020Q3

REPORT INFORMATION
  Report Type: Spontaneous
  Country: US (occurrence: US)
  Receive Date: 20190627
  Receipt Date: 20200918
  Transmission Date: 20201102
  Serious: No
  Sender: FDA-Public Use
  Company Number: US-BAYER-2019-115495

PATIENT
  Age: 60 Year
  Sex: Female

DRUGS (2)
  1. CLIMARA PRO [Suspect]
     Active Substance: ESTRADIOL\LEVONORGESTREL
     Indication: HOT FLUSH
     Dosage: UNK
     Route: 062
     Dates: start: 2012
  2. CLIMARA PRO [Suspect]
     Active Substance: ESTRADIOL\LEVONORGESTREL
     Indication: MENOPAUSAL SYMPTOMS

REACTIONS (11)
  - Incorrect dose administered by product [None]
  - Hyperhidrosis [None]
  - Poor quality sleep [None]
  - Product packaging issue [None]
  - Product adhesion issue [None]
  - Hot flush [None]
  - Product adhesion issue [None]
  - Product physical issue [None]
  - Drug ineffective [None]
  - Wrong technique in product usage process [None]
  - Product quality issue [None]

NARRATIVE: CASE EVENT DATE: 20190808
